FAERS Safety Report 5156141-7 (Version None)
Quarter: 2006Q4

REPORT INFORMATION
  Report Type: 
  Country: None (occurrence: None)
  Receive Date: 20061122
  Receipt Date: 20061114
  Transmission Date: 20070319
  Serious: Yes (Hospitalization, Other)
  Sender: FDA-Public Use
  Company Number: PHBS2006CA17766

PATIENT
  Age: 78 Year
  Sex: Female

DRUGS (2)
  1. ACETAMINOPHEN [Suspect]
     Dosage: UNK, PRN
  2. METOPROLOL [Suspect]
     Dosage: 25 MG, BID

REACTIONS (5)
  - AGITATION [None]
  - DISORIENTATION [None]
  - FEAR [None]
  - HALLUCINATION, VISUAL [None]
  - PANIC REACTION [None]
